FAERS Safety Report 7995899-6 (Version None)
Quarter: 2011Q4

REPORT INFORMATION
  Report Type: 
  Country: None (occurrence: None)
  Receive Date: 20111220
  Receipt Date: 20111209
  Transmission Date: 20120403
  Serious: Yes (Death, Other)
  Sender: FDA-Public Use
  Company Number: JP-GENZYME-THYM-1002847

PATIENT
  Sex: Male
  Weight: 58 kg

DRUGS (26)
  1. VANCOMYCIN HCL [Concomitant]
     Indication: PRODUCT USED FOR UNKNOWN INDICATION
     Dosage: UNK
     Dates: start: 20110806, end: 20110817
  2. PAZUFLOXACIN [Concomitant]
     Indication: PRODUCT USED FOR UNKNOWN INDICATION
     Dosage: UNK
     Dates: start: 20110910
  3. METHOTREXATE [Concomitant]
     Indication: PROPHYLAXIS AGAINST GRAFT VERSUS HOST DISEASE
     Dosage: UNK
     Dates: start: 20110427, end: 20110502
  4. ALBUMIN (HUMAN) [Concomitant]
     Indication: PRODUCT USED FOR UNKNOWN INDICATION
     Dosage: UNK
     Dates: start: 20110914, end: 20110922
  5. NEUPOGEN [Concomitant]
     Indication: DELAYED ENGRAFTMENT
     Dosage: UNK
     Dates: start: 20110427, end: 20110515
  6. MICAFUNGIN SODIUM [Concomitant]
     Indication: PRODUCT USED FOR UNKNOWN INDICATION
     Dosage: UNK
     Dates: start: 20110912
  7. MELPHALAN HYDROCHLORIDE [Concomitant]
     Indication: PROPHYLAXIS AGAINST GRAFT VERSUS HOST DISEASE
     Dosage: UNK
     Dates: start: 20110424, end: 20110424
  8. RED BLOOD CELLS [Concomitant]
     Indication: ACUTE MYELOID LEUKAEMIA
     Dosage: UNK
     Dates: start: 20110906, end: 20110926
  9. THYMOGLOBULIN [Suspect]
     Indication: BONE MARROW CONDITIONING REGIMEN
     Dosage: 140 MG, QD
     Route: 042
     Dates: start: 20110421, end: 20110422
  10. ACYCLOVIR [Concomitant]
     Indication: INFECTION PROPHYLAXIS
     Dosage: UNK
     Dates: start: 20110803
  11. FREEZE-DRIED PLASMIN TREATED H [Concomitant]
     Indication: PRODUCT USED FOR UNKNOWN INDICATION
     Dosage: UNK
     Dates: start: 20110905, end: 20110926
  12. CEFPIROME SULFATE [Concomitant]
     Dosage: UNK
     Dates: start: 20110509, end: 20110518
  13. AMPHOTERICIN B [Concomitant]
     Indication: PRODUCT USED FOR UNKNOWN INDICATION
     Dosage: UNK
     Dates: start: 20110803, end: 20110902
  14. ACYCLOVIR [Concomitant]
     Dosage: UNK
     Dates: start: 20110421, end: 20110623
  15. BACTRIM [Concomitant]
     Indication: INFECTION PROPHYLAXIS
     Dosage: UNK
     Dates: start: 20110804
  16. BACTRIM [Concomitant]
     Dosage: UNK
     Dates: start: 20110421, end: 20110423
  17. ITRACONAZOLE [Concomitant]
     Indication: INFECTION PROPHYLAXIS
     Dosage: UNK
     Dates: start: 20110421, end: 20110623
  18. PLATELETS [Concomitant]
     Indication: ACUTE MYELOID LEUKAEMIA
     Dosage: UNK
     Dates: start: 20110430, end: 20110531
  19. FOSCARNET SODIUM [Concomitant]
     Indication: PRODUCT USED FOR UNKNOWN INDICATION
     Dosage: UNK
     Dates: start: 20110829, end: 20110926
  20. MEROPENEM [Concomitant]
     Indication: PRODUCT USED FOR UNKNOWN INDICATION
     Dosage: UNK
     Dates: start: 20110905
  21. CEFPIROME SULFATE [Concomitant]
     Indication: PRODUCT USED FOR UNKNOWN INDICATION
     Dosage: UNK
     Dates: start: 20110803, end: 20110804
  22. FLUDARABINE PHOSPHATE [Concomitant]
     Indication: BONE MARROW CONDITIONING REGIMEN
     Dosage: UNK
     Dates: start: 20110420, end: 20110424
  23. BUSULFAN [Concomitant]
     Indication: BONE MARROW CONDITIONING REGIMEN
     Dosage: UNK
     Dates: start: 20110420, end: 20110421
  24. PLATELETS [Concomitant]
     Dosage: UNK
     Dates: start: 20110919, end: 20110926
  25. GARENOXACIN MESYLATE [Concomitant]
     Indication: INFECTION PROPHYLAXIS
     Dosage: UNK
     Dates: start: 20110420, end: 20110508
  26. PLASMA [Concomitant]
     Indication: ACUTE MYELOID LEUKAEMIA
     Dosage: UNK
     Dates: start: 19910919, end: 20110926

REACTIONS (10)
  - RENAL IMPAIRMENT [None]
  - CYTOMEGALOVIRUS GASTRITIS [None]
  - PYREXIA [None]
  - EPSTEIN-BARR VIRUS TEST POSITIVE [None]
  - ACUTE RESPIRATORY DISTRESS SYNDROME [None]
  - PNEUMONIA [None]
  - CLOSTRIDIUM DIFFICILE COLITIS [None]
  - EPSTEIN-BARR VIRUS ASSOCIATED LYMPHOPROLIFERATIVE DISORDER [None]
  - CANDIDIASIS [None]
  - CYTOMEGALOVIRUS TEST POSITIVE [None]
